FAERS Safety Report 25895523 (Version 1)
Quarter: 2025Q4

REPORT INFORMATION
  Report Type: Spontaneous
  Country: US (occurrence: US)
  Receive Date: 20251008
  Receipt Date: 20251008
  Transmission Date: 20260117
  Serious: Yes (Death, Hospitalization, Other)
  Sender: BAXTER
  Company Number: US-BAXTER-2025BAX022260

PATIENT
  Age: 69 Year
  Sex: Male

DRUGS (1)
  1. EPINEPHRINE [Suspect]
     Active Substance: EPINEPHRINE
     Indication: Anaphylactic reaction
     Dosage: 0.5 MG
     Route: 030

REACTIONS (14)
  - Kounis syndrome [Fatal]
  - Cardiac arrest [Fatal]
  - Acute myocardial infarction [Fatal]
  - Chest discomfort [Fatal]
  - Hyperhidrosis [Fatal]
  - Respiratory failure [Fatal]
  - Cardiogenic shock [Fatal]
  - Vascular graft occlusion [Fatal]
  - Ejection fraction decreased [Fatal]
  - Left atrial dilatation [Fatal]
  - Ventricular hypokinesia [Fatal]
  - Disseminated intravascular coagulation [Fatal]
  - Brain injury [Fatal]
  - Hepatic failure [Unknown]
